FAERS Safety Report 11279668 (Version 1)
Quarter: 2015Q3

REPORT INFORMATION
  Report Type: Spontaneous
  Country: US (occurrence: US)
  Receive Date: 20150717
  Receipt Date: 20150717
  Transmission Date: 20151125
  Serious: Yes (Other)
  Sender: FDA-Public Use
  Company Number: US-ASTRAZENECA-2015SE68071

PATIENT
  Age: 72 Year
  Sex: Female
  Weight: 58.1 kg

DRUGS (3)
  1. RHINOCORT [Suspect]
     Active Substance: BUDESONIDE
     Indication: HYPERSENSITIVITY
     Dosage: 32MCG 1 TO 2 SPRAYS IN EACH NOSTRIL DAILY
     Route: 045
     Dates: start: 2008
  2. OIL BASED NASAL SPRAYS [Suspect]
     Active Substance: UNSPECIFIED INGREDIENT
  3. RHINOCORT [Suspect]
     Active Substance: BUDESONIDE
     Indication: VASOMOTOR RHINITIS
     Dosage: 32MCG 1 TO 2 SPRAYS IN EACH NOSTRIL DAILY
     Route: 045
     Dates: start: 2008

REACTIONS (11)
  - Photopsia [Unknown]
  - Retching [Unknown]
  - Abdominal pain upper [Unknown]
  - Sinus disorder [Unknown]
  - Hypersensitivity [Unknown]
  - Product use issue [Unknown]
  - Glaucoma [Unknown]
  - Cataract [Unknown]
  - Epistaxis [Unknown]
  - Lactose intolerance [None]
  - Vitreous disorder [Unknown]

NARRATIVE: CASE EVENT DATE: 2008
